FAERS Safety Report 7703623-7 (Version None)
Quarter: 2011Q3

REPORT INFORMATION
  Report Type: 
  Country: None (occurrence: None)
  Receive Date: 20110823
  Receipt Date: 20110818
  Transmission Date: 20111222
  Serious: Yes (Death)
  Sender: FDA-Public Use
  Company Number: PHHY2011BR74497

PATIENT
  Age: 96 Year
  Sex: Female

DRUGS (5)
  1. OS-CAL D [Concomitant]
     Dosage: 500 MG, QD
     Route: 048
  2. OMEPRAZOLE [Concomitant]
     Indication: ULCER
     Dosage: 20 MG, QD
     Route: 048
  3. CITALOPRAM HYDROBROMIDE [Concomitant]
     Indication: DEPRESSION
     Dosage: 20 MG, QD
  4. TRAMADOL HCL [Concomitant]
     Indication: PAIN
     Dosage: 50 MG, UNK
  5. FORMOTEROL FUMARATE [Suspect]
     Indication: DYSPNOEA
     Dosage: UNK, BID

REACTIONS (1)
  - MULTI-ORGAN FAILURE [None]
